FAERS Safety Report 7027335-0 (Version None)
Quarter: 2010Q4

REPORT INFORMATION
  Report Type: 
  Country: None (occurrence: None)
  Receive Date: 20101004
  Receipt Date: 20100922
  Transmission Date: 20110411
  Serious: Yes (Hospitalization)
  Sender: FDA-Public Use
  Company Number: PHHY2010JP63614

PATIENT
  Sex: Male

DRUGS (8)
  1. AFINITOR [Suspect]
     Indication: METASTATIC RENAL CELL CARCINOMA
     Dosage: 10 MG, QD
     Route: 048
     Dates: start: 20100507, end: 20100518
  2. OMEPRAL [Concomitant]
     Dosage: 1 DF, UNK
     Route: 048
  3. PRIDINOL MESILATE [Concomitant]
     Dosage: 1 DF, UNK
     Route: 048
  4. MOBIC [Concomitant]
     Dosage: 1 DF, UNK
     Route: 048
  5. OXYCONTIN [Concomitant]
     Dosage: 2 DF, UNK
     Route: 048
  6. MAGMITT [Concomitant]
     Dosage: 2 DF, UNK
     Route: 048
  7. OPSO [Concomitant]
     Dosage: 1 DF, UNK
     Route: 048
  8. AMOBAN [Concomitant]
     Dosage: 1 DF, UNK
     Route: 048

REACTIONS (1)
  - ANAL FISTULA [None]
